FAERS Safety Report 8597601-6 (Version None)
Quarter: 2012Q3

REPORT INFORMATION
  Report Type: 
  Country: None (occurrence: None)
  Receive Date: 20120816
  Receipt Date: 20120808
  Transmission Date: 20120928
  Serious: Yes (Hospitalization)
  Sender: FDA-Public Use
  Company Number: US-BAYER-2012-081420

PATIENT
  Age: 36 Year
  Sex: Female

DRUGS (5)
  1. TIZANIDINE [Concomitant]
     Dosage: 4 MG, UNK
  2. YASMIN [Suspect]
  3. NEURONTIN [Concomitant]
     Dosage: 800 MG, UNK
  4. BENICAR HCT [Concomitant]
     Dosage: 40-25 MG TABLET
  5. HYDROCODONE BITARTRATE [Concomitant]
     Dosage: 10/325 MG

REACTIONS (2)
  - PULMONARY EMBOLISM [None]
  - PULMONARY INFARCTION [None]
